FAERS Safety Report 25038469 (Version 1)
Quarter: 2025Q1

REPORT INFORMATION
  Report Type: Spontaneous
  Country: US (occurrence: US)
  Receive Date: 20250304
  Receipt Date: 20250304
  Transmission Date: 20250408
  Serious: Yes (Other)
  Sender: BRISTOL-MYERS SQUIBB COMPANY
  Company Number: US-MLMSERVICE-20250217-PI414058-00249-1

PATIENT
  Age: 62 Year
  Sex: Male

DRUGS (12)
  1. ABRAXANE [Suspect]
     Active Substance: PACLITAXEL
     Indication: Pancreatic carcinoma metastatic
     Dates: start: 202003
  2. ABRAXANE [Suspect]
     Active Substance: PACLITAXEL
     Dates: start: 20200414, end: 20200622
  3. ABRAXANE [Suspect]
     Active Substance: PACLITAXEL
     Dates: start: 20200714, end: 20200721
  4. ABRAXANE [Suspect]
     Active Substance: PACLITAXEL
     Dates: start: 202008
  5. GEMCITABINE [Suspect]
     Active Substance: GEMCITABINE
     Indication: Pancreatic carcinoma metastatic
     Route: 042
     Dates: start: 202003
  6. GEMCITABINE [Suspect]
     Active Substance: GEMCITABINE
     Dates: start: 20200414, end: 20200622
  7. GEMCITABINE [Suspect]
     Active Substance: GEMCITABINE
     Dates: start: 20200714, end: 20200721
  8. GEMCITABINE [Suspect]
     Active Substance: GEMCITABINE
     Dates: start: 202008
  9. ALDOXORUBICIN [Concomitant]
     Active Substance: ALDOXORUBICIN
     Indication: Pancreatic carcinoma metastatic
  10. CYCLOPHOSPHAMIDE [Concomitant]
     Active Substance: CYCLOPHOSPHAMIDE
     Indication: Pancreatic carcinoma metastatic
     Route: 048
  11. CISPLATIN [Concomitant]
     Active Substance: CISPLATIN
     Indication: Pancreatic carcinoma metastatic
  12. PEMBROLIZUMAB [Concomitant]
     Active Substance: PEMBROLIZUMAB
     Indication: Pancreatic carcinoma metastatic
     Dates: start: 20200721

REACTIONS (1)
  - Neutropenia [Unknown]
